FAERS Safety Report 10304275 (Version 2)
Quarter: 2014Q3

REPORT INFORMATION
  Report Type: Spontaneous
  Country: CZ (occurrence: CZ)
  Receive Date: 20140714
  Receipt Date: 20140719
  Transmission Date: 20150326
  Serious: Yes (Other)
  Sender: FDA-Public Use
  Company Number: PHHY2014CZ084882

PATIENT
  Age: 46 Year
  Sex: Female

DRUGS (2)
  1. DOCETAXEL [Suspect]
     Active Substance: DOCETAXEL
     Indication: BREAST CANCER
  2. DOXORUBICIN [Suspect]
     Active Substance: DOXORUBICIN
     Indication: BREAST CANCER

REACTIONS (8)
  - Dyspnoea [Recovering/Resolving]
  - Drug tolerance [Unknown]
  - Pericardial effusion [Unknown]
  - Pleural effusion [Unknown]
  - Metastases to lung [Recovering/Resolving]
  - Malignant neoplasm progression [Recovering/Resolving]
  - Metastases to bone [Recovering/Resolving]
  - Breast cancer [Recovering/Resolving]
